FAERS Safety Report 6664651-6 (Version None)
Quarter: 2010Q1

REPORT INFORMATION
  Report Type: 
  Country: None (occurrence: None)
  Receive Date: 20100330
  Receipt Date: 20100322
  Transmission Date: 20100710
  Serious: Yes (Death, Hospitalization, Other)
  Sender: FDA-Public Use
  Company Number: FABR-1000882

PATIENT
  Age: 61 Year
  Sex: Male
  Weight: 55 kg

DRUGS (7)
  1. FABRAZYME [Suspect]
     Indication: FABRY'S DISEASE
     Dosage: 70 MG, INTRAVENOUS; 0.3 MG/KG,INTRAVENOUS 3 0.5 MG/KG, ONCE; 0.5 MG/KG, ONCE, INTRAVENOUS
     Route: 042
     Dates: start: 20010101, end: 20090601
  2. FABRAZYME [Suspect]
     Indication: FABRY'S DISEASE
     Dosage: 70 MG, INTRAVENOUS; 0.3 MG/KG,INTRAVENOUS 3 0.5 MG/KG, ONCE; 0.5 MG/KG, ONCE, INTRAVENOUS
     Route: 042
     Dates: start: 20090101, end: 20100320
  3. FABRAZYME [Suspect]
     Indication: FABRY'S DISEASE
     Dosage: 70 MG, INTRAVENOUS; 0.3 MG/KG,INTRAVENOUS 3 0.5 MG/KG, ONCE; 0.5 MG/KG, ONCE, INTRAVENOUS
     Route: 042
     Dates: end: 20100320
  4. FABRAZYME [Suspect]
     Indication: FABRY'S DISEASE
     Dosage: 70 MG, INTRAVENOUS; 0.3 MG/KG,INTRAVENOUS 3 0.5 MG/KG, ONCE; 0.5 MG/KG, ONCE, INTRAVENOUS
     Route: 042
     Dates: end: 20100320
  5. METOPROLOL       (METOPROLOL) [Concomitant]
  6. ANTIHYPERTENSIVES [Concomitant]
  7. ANTITHROMBOTIC AGENTS [Concomitant]

REACTIONS (7)
  - ASPHYXIA [None]
  - CARDIAC DISORDER [None]
  - CARDIOVASCULAR DISORDER [None]
  - CEREBROVASCULAR ACCIDENT [None]
  - GENERAL PHYSICAL HEALTH DETERIORATION [None]
  - HEADACHE [None]
  - WEIGHT DECREASED [None]
